FAERS Safety Report 13670887 (Version 1)
Quarter: 2017Q2

REPORT INFORMATION
  Report Type: Spontaneous
  Country: US (occurrence: US)
  Receive Date: 20170620
  Receipt Date: 20170620
  Transmission Date: 20170830
  Serious: No
  Sender: FDA-Public Use
  Company Number: US-ROCHE-1437577

PATIENT
  Sex: Female

DRUGS (1)
  1. XELODA [Suspect]
     Active Substance: CAPECITABINE
     Indication: COLON CANCER
     Dosage: 2 TABLETS BY MOUTH TWICE A DAY FOR 2 WEEKS ON THEN 1 WEEK OFF
     Route: 048
     Dates: start: 20140112, end: 20140715

REACTIONS (1)
  - Palmar-plantar erythrodysaesthesia syndrome [Unknown]
